FAERS Safety Report 7763518-X (Version None)
Quarter: 2011Q3

REPORT INFORMATION
  Report Type: 
  Country: None (occurrence: None)
  Receive Date: 20110920
  Receipt Date: 20110916
  Transmission Date: 20111222
  Serious: Yes (Death)
  Sender: FDA-Public Use
  Company Number: JP-B.I. PHARMACEUTICALS,INC./RIDGEFIELD-2011-BP-22480NB

PATIENT
  Age: 79 Year
  Sex: Male

DRUGS (7)
  1. DUTASTERIDE [Concomitant]
     Route: 065
  2. VESICARE [Concomitant]
     Route: 065
  3. FUROSEMIDE [Concomitant]
     Route: 065
  4. PRADAXA [Suspect]
     Indication: ATRIAL FIBRILLATION
     Dosage: 220 MG
     Route: 048
     Dates: start: 20110527, end: 20110628
  5. FERROSTEC [Concomitant]
     Route: 065
  6. VERAPAMIL HCL [Concomitant]
     Route: 065
  7. URIEF [Concomitant]
     Route: 065

REACTIONS (4)
  - MULTI-ORGAN FAILURE [None]
  - INFECTION [None]
  - GASTROINTESTINAL HAEMORRHAGE [None]
  - ANAEMIA [None]
